FAERS Safety Report 5517163-7 (Version None)
Quarter: 2007Q4

REPORT INFORMATION
  Report Type: 
  Country: None (occurrence: None)
  Receive Date: 20071114
  Receipt Date: 20071106
  Transmission Date: 20080405
  Serious: Yes (Other)
  Sender: FDA-Public Use
  Company Number: US-ASTRAZENECA-2007UW25835

PATIENT
  Sex: Female

DRUGS (1)
  1. CRESTOR [Suspect]
     Route: 048
     Dates: start: 20060101, end: 20070101

REACTIONS (4)
  - CARTILAGE ATROPHY [None]
  - MENISCUS LESION [None]
  - MUSCLE ATROPHY [None]
  - MUSCULAR WEAKNESS [None]
